FAERS Safety Report 6330599-X (Version None)
Quarter: 2009Q3

REPORT INFORMATION
  Report Type: 
  Country: None (occurrence: None)
  Receive Date: 20090827
  Receipt Date: 20090814
  Transmission Date: 20100115
  Serious: Yes (Other)
  Sender: FDA-Public Use
  Company Number: GB-PFIZER INC-2009254818

PATIENT
  Age: 24 Year

DRUGS (2)
  1. CHAMPIX [Suspect]
     Indication: SMOKING CESSATION THERAPY
     Dosage: 500 UG, UNK
     Route: 048
     Dates: start: 20090508, end: 20090604
  2. LAMOTRIGINE [Concomitant]
     Indication: EPILEPSY
     Dosage: 100 MG, 2X/DAY
     Route: 048
     Dates: start: 20081213

REACTIONS (1)
  - EPILEPSY [None]
